FAERS Safety Report 4476013-0 (Version None)
Quarter: 2004Q4

REPORT INFORMATION
  Report Type: 
  Country: None (occurrence: None)
  Receive Date: 20041012
  Receipt Date: 20040928
  Transmission Date: 20050328
  Serious: Yes (Hospitalization)
  Sender: FDA-Public Use
  Company Number: HQWYE454330SEP04

PATIENT
  Sex: Male

DRUGS (4)
  1. EFFEXOR XR [Suspect]
     Indication: DEPRESSION
     Dosage: 75 MG PRE-PREGNANCY, TRANSPLACENTAL SEE IMAGE
     Route: 064
     Dates: start: 20040101, end: 20040101
  2. EFFEXOR XR [Suspect]
     Indication: DEPRESSION
     Dosage: 75 MG PRE-PREGNANCY, TRANSPLACENTAL SEE IMAGE
     Route: 064
     Dates: end: 20040101
  3. EFFEXOR XR [Suspect]
     Indication: DEPRESSION
     Dosage: 75 MG PRE-PREGNANCY, TRANSPLACENTAL SEE IMAGE
     Route: 064
     Dates: start: 20040101
  4. WELLBUTRIN [Concomitant]
     Route: 064

REACTIONS (4)
  - APGAR SCORE LOW [None]
  - DRUG EXPOSURE DURING PREGNANCY [None]
  - OLIGOHYDRAMNIOS [None]
  - TRANSIENT TACHYPNOEA OF THE NEWBORN [None]
